FAERS Safety Report 26061262 (Version 1)
Quarter: 2025Q4

REPORT INFORMATION
  Report Type: Spontaneous
  Country: US (occurrence: US)
  Receive Date: 20251118
  Receipt Date: 20251118
  Transmission Date: 20260118
  Serious: No
  Sender: AMPHASTAR
  Company Number: US-Amphastar Pharmaceuticals, Inc.-2188813

PATIENT
  Age: 37 Year
  Sex: Female
  Weight: 70.455 kg

DRUGS (4)
  1. ENOXAPARIN SODIUM [Suspect]
     Active Substance: ENOXAPARIN SODIUM
     Indication: Factor V Leiden mutation
     Dates: start: 20250721
  2. ENOXAPARIN SODIUM [Suspect]
     Active Substance: ENOXAPARIN SODIUM
     Indication: In vitro fertilisation
  3. GONAL-F [Concomitant]
     Active Substance: FOLLITROPIN
  4. MENOPUR [Concomitant]
     Active Substance: FOLLITROPIN\LUTEINIZING HORMONE

REACTIONS (2)
  - Injection site bruising [Unknown]
  - Administration site discomfort [Unknown]

NARRATIVE: CASE EVENT DATE: 20250721
